FAERS Safety Report 4512322-4 (Version None)
Quarter: 2004Q4

REPORT INFORMATION
  Report Type: 
  Country: None (occurrence: None)
  Receive Date: 20041129
  Receipt Date: 20041118
  Transmission Date: 20050328
  Serious: Yes (Life-Threatening)
  Sender: FDA-Public Use
  Company Number: JP-GLAXOSMITHKLINE-B0357480A

PATIENT
  Age: 69 Year
  Sex: Male

DRUGS (7)
  1. VALTREX [Suspect]
     Indication: HERPES ZOSTER
     Dosage: 1000MG THREE TIMES PER DAY
     Route: 048
     Dates: start: 20041018, end: 20041022
  2. ALBUMIN (HUMAN) [Concomitant]
  3. ALLEGRA [Concomitant]
     Route: 048
  4. ULCERLMIN [Concomitant]
     Route: 048
  5. PARIET [Concomitant]
     Route: 048
  6. GLAKAY [Concomitant]
     Route: 048
  7. LIVACT [Concomitant]
     Route: 048

REACTIONS (2)
  - LYMPHOCYTE COUNT DECREASED [None]
  - THROMBOCYTOPENIA [None]
